FAERS Safety Report 7348595-2 (Version None)
Quarter: 2011Q1

REPORT INFORMATION
  Report Type: 
  Country: None (occurrence: None)
  Receive Date: 20110314
  Receipt Date: 20110301
  Transmission Date: 20110831
  Serious: Yes (Hospitalization)
  Sender: FDA-Public Use
  Company Number: US-BIOGENIDEC-2011BI008999

PATIENT
  Age: 55 Year
  Sex: Male

DRUGS (1)
  1. AVONEX [Suspect]
     Indication: MULTIPLE SCLEROSIS
     Route: 030
     Dates: start: 19990623, end: 20101120

REACTIONS (4)
  - VENOUS OCCLUSION [None]
  - MYOCARDIAL INFARCTION [None]
  - VEIN DISORDER [None]
  - DECUBITUS ULCER [None]
